FAERS Safety Report 11773781 (Version 1)
Quarter: 2015Q4

REPORT INFORMATION
  Report Type: Spontaneous
  Country: TR (occurrence: TR)
  Receive Date: 20151124
  Receipt Date: 20151124
  Transmission Date: 20160304
  Serious: Yes (Other)
  Sender: FDA-Public Use
  Company Number: CHPA2015TR013556

PATIENT
  Age: 36 Year
  Sex: Male
  Weight: 73 kg

DRUGS (3)
  1. OTRIVIN [Suspect]
     Active Substance: XYLOMETAZOLINE
     Indication: NASAL CONGESTION
  2. DIPROSPAN [Concomitant]
     Active Substance: BETAMETHASONE DIPROPIONATE\BETAMETHASONE SODIUM PHOSPHATE
     Indication: PRODUCT USED FOR UNKNOWN INDICATION
     Dosage: 1 ML, QMO FOR 4 MONTHS
     Route: 030
  3. OTRIVIN [Suspect]
     Active Substance: XYLOMETAZOLINE
     Indication: INFLUENZA
     Dosage: 10 ML, UNK
     Route: 045
     Dates: start: 20000101

REACTIONS (14)
  - Hypertension [Not Recovered/Not Resolved]
  - Epistaxis [Not Recovered/Not Resolved]
  - Nasal odour [Not Recovered/Not Resolved]
  - Product use issue [Unknown]
  - Nasal disorder [Not Recovered/Not Resolved]
  - Nasal congestion [Unknown]
  - Arrhythmia [Not Recovered/Not Resolved]
  - Rebound effect [Unknown]
  - Headache [Not Recovered/Not Resolved]
  - Dyspnoea [Not Recovered/Not Resolved]
  - Rhinorrhoea [Not Recovered/Not Resolved]
  - Influenza like illness [Not Recovered/Not Resolved]
  - Drug dependence [Not Recovered/Not Resolved]
  - Somnolence [Not Recovered/Not Resolved]

NARRATIVE: CASE EVENT DATE: 20000101
